FAERS Safety Report 21141299 (Version 1)
Quarter: 2022Q3

REPORT INFORMATION
  Report Type: Spontaneous
  Country: NZ (occurrence: NZ)
  Receive Date: 20220728
  Receipt Date: 20220728
  Transmission Date: 20221027
  Serious: Yes (Other)
  Sender: FDA-Public Use
  Company Number: NZ-ABBVIE-22K-118-4477182-00

PATIENT
  Age: 41 Year
  Sex: Male

DRUGS (4)
  1. GLECAPREVIR\PIBRENTASVIR [Suspect]
     Active Substance: GLECAPREVIR\PIBRENTASVIR
     Indication: Hepatitis C
     Dosage: 3
     Route: 048
     Dates: start: 20220424, end: 20220619
  2. VIEKIRA PAK [Concomitant]
     Active Substance: DASABUVIR\OMBITASVIR\PARITAPREVIR\RITONAVIR
     Indication: Product used for unknown indication
     Dates: start: 2018
  3. PREGABALIN [Concomitant]
     Active Substance: PREGABALIN
     Indication: Sciatica
     Route: 048
  4. METHYLPHENIDATE [Concomitant]
     Active Substance: METHYLPHENIDATE
     Indication: Rehabilitation therapy

REACTIONS (2)
  - Product dispensing error [Unknown]
  - Hepatitis C [Unknown]

NARRATIVE: CASE EVENT DATE: 20220101
